FAERS Safety Report 5355171-X (Version None)
Quarter: 2007Q2

REPORT INFORMATION
  Report Type: 
  Country: None (occurrence: None)
  Receive Date: 20070525
  Receipt Date: 20070129
  Transmission Date: 20071010
  Serious: Yes (Other)
  Sender: FDA-Public Use
  Company Number: WAES 0701USA04784

PATIENT
  Sex: 0

DRUGS (2)
  1. VYTORIN [Suspect]
     Dosage: PO
     Route: 048
  2. BIAXIN [Concomitant]

REACTIONS (1)
  - RHABDOMYOLYSIS [None]
